FAERS Safety Report 25827653 (Version 1)
Quarter: 2025Q3

REPORT INFORMATION
  Report Type: Spontaneous
  Country: US (occurrence: US)
  Receive Date: 20250921
  Receipt Date: 20250921
  Transmission Date: 20251021
  Serious: Yes (Hospitalization)
  Sender: SANDOZ
  Company Number: US-MLMSERVICE-20250905-PI637124-00138-1

PATIENT
  Age: 63 Year
  Sex: Female

DRUGS (1)
  1. ESTRADIOL [Suspect]
     Active Substance: ESTRADIOL
     Indication: Hormone replacement therapy
     Route: 048

REACTIONS (4)
  - Hyponatraemia [Unknown]
  - Metabolic acidosis [Unknown]
  - Renal artery stenosis [Recovered/Resolved]
  - Renal infarct [Recovered/Resolved]
